FAERS Safety Report 9703772 (Version 1)
Quarter: 2013Q4

REPORT INFORMATION
  Report Type: Spontaneous
  Country: US (occurrence: None)
  Receive Date: 20131121
  Receipt Date: 20131121
  Transmission Date: 20140711
  Serious: Yes (Hospitalization)
  Sender: FDA-Public Use
  Company Number: None

PATIENT
  Age: 67 Year
  Sex: Female

DRUGS (1)
  1. NEXAVAR 200MG BAYER [Suspect]
     Indication: HEPATIC CANCER
     Route: 048
     Dates: start: 20130209

REACTIONS (5)
  - Dehydration [None]
  - Headache [None]
  - Dysphagia [None]
  - Cough [None]
  - Musculoskeletal pain [None]
